FAERS Safety Report 12729833 (Version 1)
Quarter: 2016Q3

REPORT INFORMATION
  Report Type: Spontaneous
  Country: US (occurrence: US)
  Receive Date: 20160909
  Receipt Date: 20160909
  Transmission Date: 20161109
  Serious: No
  Sender: FDA-Public Use
  Company Number: US-BAYER-2016-176158

PATIENT
  Age: 2 Year
  Sex: Male

DRUGS (1)
  1. ALEVE [Suspect]
     Active Substance: NAPROXEN SODIUM
     Dosage: UNK, ONCE
     Route: 048
     Dates: start: 20160809, end: 20160809

REACTIONS (1)
  - Accidental exposure to product by child [None]

NARRATIVE: CASE EVENT DATE: 20160809
